FAERS Safety Report 14825775 (Version 1)
Quarter: 2018Q2

REPORT INFORMATION
  Report Type: Spontaneous
  Country: US (occurrence: US)
  Receive Date: 20180430
  Receipt Date: 20180430
  Transmission Date: 20180711
  Serious: Yes (Other)
  Sender: FDA-Public Use
  Company Number: US-009507513-1804USA010819

PATIENT
  Age: 16 Year
  Sex: Female

DRUGS (2)
  1. TEMODAR [Suspect]
     Active Substance: TEMOZOLOMIDE
     Dosage: 5-DAY PULSES OF TEMOZOLOMIDE EVERY 28 DAYS, DOSE REDUCTION TO 75% WITH CYCLE 3/STOPPED AFTER CYCLE 6
     Route: 048
  2. TEMODAR [Suspect]
     Active Substance: TEMOZOLOMIDE
     Indication: GANGLIOGLIOMA
     Dosage: 5-DAY PULSES OF TEMOZOLOMIDE EVERY 28 DAYS/2 CYCLE
     Route: 048

REACTIONS (3)
  - Cytopenia [Unknown]
  - Nausea [Unknown]
  - Dizziness [Unknown]
